FAERS Safety Report 6698402-6 (Version None)
Quarter: 2010Q2

REPORT INFORMATION
  Report Type: 
  Country: None (occurrence: None)
  Receive Date: 20100427
  Receipt Date: 20100415
  Transmission Date: 20101027
  Serious: Yes (Other)
  Sender: FDA-Public Use
  Company Number: JP-ROCHE-688102

PATIENT
  Sex: Male
  Weight: 86 kg

DRUGS (13)
  1. AVASTIN [Suspect]
     Indication: RECTAL CANCER RECURRENT
     Route: 041
     Dates: start: 20100112, end: 20100223
  2. XELODA [Suspect]
     Indication: RECTAL CANCER RECURRENT
     Dosage: DRUG NAME:XELODA 300, DOSE DECRESED
     Route: 048
     Dates: start: 20100112, end: 20100125
  3. XELODA [Suspect]
     Route: 048
     Dates: start: 20100202, end: 20100215
  4. XELODA [Suspect]
     Route: 048
     Dates: start: 20100226, end: 20100311
  5. ELPLAT [Suspect]
     Indication: RECTAL CANCER RECURRENT
     Route: 041
     Dates: start: 20100112, end: 20100223
  6. DOXAZOSIN MESYLATE [Concomitant]
     Route: 048
     Dates: start: 20070403
  7. NITOROL [Concomitant]
     Route: 048
     Dates: start: 20070403
  8. LANDEL [Concomitant]
     Route: 048
     Dates: start: 20070403
  9. HYPEN [Concomitant]
     Route: 048
     Dates: start: 20070403
  10. OMEPRAL [Concomitant]
     Route: 048
     Dates: start: 20070403
  11. GASMOTIN [Concomitant]
     Route: 048
     Dates: start: 20070403
  12. RAMELTEON [Concomitant]
     Route: 041
     Dates: start: 20100223, end: 20100223
  13. DECADRON [Concomitant]
     Route: 065
     Dates: start: 20100223, end: 20100223

REACTIONS (4)
  - ANAPHYLACTIC SHOCK [None]
  - HYPOAESTHESIA [None]
  - SKIN CHAPPED [None]
  - STOMATITIS [None]
